FAERS Safety Report 16833346 (Version 2)
Quarter: 2019Q4

REPORT INFORMATION
  Report Type: Spontaneous
  Country: JP (occurrence: JP)
  Receive Date: 20190920
  Receipt Date: 20191014
  Transmission Date: 20200122
  Serious: Yes (Death, Other)
  Sender: FDA-Public Use
  Company Number: JP-BAYER-2019-167367

PATIENT
  Sex: Male

DRUGS (1)
  1. NEXAVAR [Suspect]
     Active Substance: SORAFENIB
     Indication: HEPATOCELLULAR CARCINOMA
     Dosage: 800MG DAILY, BID
     Route: 048
     Dates: start: 20190816, end: 20190831

REACTIONS (2)
  - Hepatocellular carcinoma [Fatal]
  - Liver carcinoma ruptured [Fatal]

NARRATIVE: CASE EVENT DATE: 20190831
